FAERS Safety Report 6511785-2 (Version None)
Quarter: 2009Q4

REPORT INFORMATION
  Report Type: 
  Country: None (occurrence: None)
  Receive Date: 20091222
  Receipt Date: 20090408
  Transmission Date: 20100525
  Serious: No
  Sender: FDA-Public Use
  Company Number: US-ASTRAZENECA-2009UW08803

PATIENT
  Age: 22628 Day
  Sex: Female
  Weight: 74.4 kg

DRUGS (3)
  1. CRESTOR [Suspect]
     Route: 048
     Dates: start: 20090328
  2. SYNTHROID [Concomitant]
  3. VITAMINS [Concomitant]

REACTIONS (3)
  - ASTHENIA [None]
  - BACK PAIN [None]
  - TREMOR [None]
